FAERS Safety Report 19797188 (Version 1)
Quarter: 2021Q3

REPORT INFORMATION
  Report Type: Spontaneous
  Country: US (occurrence: US)
  Receive Date: 20210907
  Receipt Date: 20210907
  Transmission Date: 20211014
  Serious: Yes (Hospitalization)
  Sender: FDA-Public Use
  Company Number: US-FRESENIUS MEDICAL CARE RENAL THERAPIES GROUP-FMC-2108-001318

PATIENT
  Age: 64 Year
  Sex: Male
  Weight: 107 kg

DRUGS (3)
  1. DELFLEX WITH DEXTROSE 2.5% LOW MAGNESIUM LOW CALCIUM [Suspect]
     Active Substance: CALCIUM CHLORIDE\DEXTROSE\MAGNESIUM CHLORIDE\SODIUM CHLORIDE\SODIUM LACTATE
     Indication: END STAGE RENAL DISEASE
     Dosage: EXCHANGES = 6, FIRST FILL VOLUME = 3000 ML, TIDAL FILL VOLUME = 6000 ML, TIDAL DRAIN VOLUME = 2650 M
     Route: 033
     Dates: start: 20190101
  2. DELFLEX WITH DEXTROSE 4.25% LOW MAGNESIUM LOW CALCIUM [Suspect]
     Active Substance: CALCIUM CHLORIDE\DEXTROSE\MAGNESIUM CHLORIDE\SODIUM CHLORIDE\SODIUM LACTATE
     Indication: END STAGE RENAL DISEASE
     Dosage: EXCHANGES = 6, FIRST FILL VOLUME = 3000 ML, TIDAL FILL VOLUME = 6000 ML, TIDAL DRAIN VOLUME = 2650 M
     Route: 033
     Dates: start: 20190101
  3. DELFLEX WITH DEXTROSE 1.5% LOW MAGNESIUM LOW CALCIUM [Suspect]
     Active Substance: CALCIUM CHLORIDE\DEXTROSE\MAGNESIUM CHLORIDE\SODIUM CHLORIDE\SODIUM LACTATE
     Indication: END STAGE RENAL DISEASE
     Dosage: EXCHANGES = 6, FIRST FILL VOLUME = 3000 ML, TIDAL FILL VOLUME = 6000 ML, TIDAL DRAIN VOLUME = 2650
     Route: 033
     Dates: start: 20190101

REACTIONS (1)
  - Peritonitis bacterial [Unknown]
